FAERS Safety Report 24946972 (Version 2)
Quarter: 2025Q1

REPORT INFORMATION
  Report Type: Spontaneous
  Country: US (occurrence: US)
  Receive Date: 20250210
  Receipt Date: 20250317
  Transmission Date: 20250409
  Serious: No
  Sender: SANOFI AVENTIS
  Company Number: US-SA-2024SA134141

PATIENT
  Age: 78 Year
  Sex: Female
  Weight: 76.2 kg

DRUGS (30)
  1. DUPIXENT [Suspect]
     Active Substance: DUPILUMAB
     Indication: Dermatitis atopic
     Dosage: 300 MG, QOW
     Route: 058
     Dates: start: 20240116
  2. IRON [Suspect]
     Active Substance: IRON
  3. CARVEDILOL [Concomitant]
     Active Substance: CARVEDILOL
  4. PREGABALIN [Concomitant]
     Active Substance: PREGABALIN
  5. CELECOXIB [Concomitant]
     Active Substance: CELECOXIB
  6. CYANOCOBALAMIN [Concomitant]
     Active Substance: CYANOCOBALAMIN
  7. DULOXETINE HYDROCHLORIDE [Concomitant]
     Active Substance: DULOXETINE HYDROCHLORIDE
  8. ATORVASTATIN CALCIUM [Concomitant]
     Active Substance: ATORVASTATIN CALCIUM
  9. FLECAINIDE ACETATE [Concomitant]
     Active Substance: FLECAINIDE ACETATE
  10. OMEPRAZOLE [Concomitant]
     Active Substance: OMEPRAZOLE
  11. ELIQUIS [Concomitant]
     Active Substance: APIXABAN
  12. SERTRALINE HYDROCHLORIDE [Concomitant]
     Active Substance: SERTRALINE HYDROCHLORIDE
  13. CARBIDOPA AND LEVODOPA [Concomitant]
     Active Substance: CARBIDOPA\LEVODOPA
  14. CLOBETASOL PROPIONATE [Concomitant]
     Active Substance: CLOBETASOL PROPIONATE
  15. TACROLIMUS [Concomitant]
     Active Substance: TACROLIMUS
  16. ONDANSETRON ODT [ONDANSETRON HYDROCHLORIDE] [Concomitant]
  17. DOXYCYCLINE HYCLATE [Concomitant]
     Active Substance: DOXYCYCLINE HYCLATE
  18. MAGNESIUM ELEMENTAL [Concomitant]
  19. .ALPHA.-TOCOPHEROL [Concomitant]
     Active Substance: .ALPHA.-TOCOPHEROL
  20. MINERALS\VITAMINS [Concomitant]
     Active Substance: MINERALS\VITAMINS
  21. NIACIN [Concomitant]
     Active Substance: NIACIN
  22. CALCIUM ACETATE [Concomitant]
     Active Substance: CALCIUM ACETATE
  23. ASPIRIN [Concomitant]
     Active Substance: ASPIRIN
  24. YUVAFEM [Concomitant]
     Active Substance: ESTRADIOL HEMIHYDRATE
  25. BAYER ASPIRIN [Concomitant]
     Active Substance: ASPIRIN
  26. TRIAMCINOLONE ACETONIDE [Concomitant]
     Active Substance: TRIAMCINOLONE ACETONIDE
  27. NITROSTAT [Concomitant]
     Active Substance: NITROGLYCERIN
  28. VITAMIN D3 [Concomitant]
     Active Substance: CHOLECALCIFEROL
  29. OMEGA-3-ACID ETHYL ESTERS [Concomitant]
     Active Substance: OMEGA-3-ACID ETHYL ESTERS
  30. VITAMIN D NOS [Concomitant]
     Active Substance: CHOLECALCIFEROL\ERGOCALCIFEROL

REACTIONS (2)
  - Abdominal discomfort [Unknown]
  - Poor quality product administered [Unknown]
